FAERS Safety Report 5114699-8 (Version None)
Quarter: 2006Q3

REPORT INFORMATION
  Report Type: 
  Country: None (occurrence: None)
  Receive Date: 20060926
  Receipt Date: 20060914
  Transmission Date: 20061208
  Serious: Yes (Hospitalization)
  Sender: FDA-Public Use
  Company Number: BE-JNJFOC-20060904216

PATIENT
  Age: 51 Year
  Sex: Male

DRUGS (13)
  1. REMICADE [Suspect]
     Indication: RHEUMATOID ARTHRITIS
     Route: 042
  2. METHOTREXATE [Concomitant]
     Indication: RHEUMATOID ARTHRITIS
     Route: 048
  3. ARAVA [Concomitant]
     Route: 065
  4. PREDNISONE TAB [Concomitant]
     Route: 065
  5. FOLIC ACID [Concomitant]
     Route: 065
  6. NICOTIBINE [Concomitant]
     Indication: SKIN TEST POSITIVE
     Route: 065
  7. PYRIDOXINE HCL [Concomitant]
     Route: 065
  8. OMEPRAZOLE [Concomitant]
     Route: 065
  9. CARDIO ASPIRINE [Concomitant]
     Route: 065
  10. PRETERAX [Concomitant]
     Route: 065
  11. LORAZEPAM [Concomitant]
     Route: 065
  12. PERICAL [Concomitant]
     Route: 065
  13. NASONEX [Concomitant]
     Route: 065

REACTIONS (4)
  - DIARRHOEA [None]
  - GENERAL PHYSICAL HEALTH DETERIORATION [None]
  - HEPATITIS TOXIC [None]
  - PNEUMOCYSTIS JIROVECI PNEUMONIA [None]
